FAERS Safety Report 14338599 (Version 7)
Quarter: 2018Q2

REPORT INFORMATION
  Report Type: Spontaneous
  Country: FR (occurrence: FR)
  Receive Date: 20171229
  Receipt Date: 20180416
  Transmission Date: 20180711
  Serious: Yes (Death, Other)
  Sender: FDA-Public Use
  Company Number: FR-PFIZER INC-2017555561

PATIENT
  Age: 59 Year
  Sex: Male
  Weight: 74 kg

DRUGS (7)
  1. CALCIPARINE [Suspect]
     Active Substance: HEPARIN CALCIUM
     Indication: THROMBOSIS PROPHYLAXIS
     Dosage: UNK
     Route: 058
     Dates: start: 20171006, end: 20171006
  2. MERONEM [Suspect]
     Active Substance: MEROPENEM
     Indication: LUNG DISORDER
     Dosage: UNK
     Route: 042
     Dates: start: 20171004, end: 20171006
  3. CORDARONE [Suspect]
     Active Substance: AMIODARONE HYDROCHLORIDE
     Indication: ATRIAL FIBRILLATION
     Dosage: UNK
     Route: 042
     Dates: start: 20171004, end: 20171008
  4. ZOVIRAX [Suspect]
     Active Substance: ACYCLOVIR
     Indication: PROPHYLAXIS
     Dosage: UNK
     Route: 042
     Dates: start: 20171006, end: 20171011
  5. CERTICAN [Suspect]
     Active Substance: EVEROLIMUS
     Indication: PROPHYLAXIS AGAINST TRANSPLANT REJECTION
     Dosage: UNK
     Route: 048
     Dates: start: 20170918, end: 20170929
  6. TRIATEC (RAMIPRIL) [Suspect]
     Active Substance: RAMIPRIL
     Indication: HYPERTENSION
     Dosage: UNK
     Route: 048
     Dates: start: 20170902, end: 20171004
  7. BACTRIM [Suspect]
     Active Substance: SULFAMETHOXAZOLE\TRIMETHOPRIM
     Indication: LUNG DISORDER
     Dosage: UNK
     Route: 042
     Dates: start: 20171004, end: 20171006

REACTIONS (7)
  - Rash maculo-papular [Fatal]
  - Dermatitis bullous [Fatal]
  - Face oedema [Fatal]
  - Acute kidney injury [Fatal]
  - Alveolitis necrotising [Fatal]
  - Histiocytosis haematophagic [Fatal]
  - Colitis [Fatal]

NARRATIVE: CASE EVENT DATE: 20170922
